FAERS Safety Report 10599712 (Version 1)
Quarter: 2014Q4

REPORT INFORMATION
  Report Type: Spontaneous
  Country: FR (occurrence: FR)
  Receive Date: 20141121
  Receipt Date: 20141121
  Transmission Date: 20150529
  Serious: Yes (Hospitalization)
  Sender: FDA-Public Use
  Company Number: FR-SA-2014SA157709

PATIENT
  Age: 54 Year
  Sex: Female

DRUGS (7)
  1. THIOPENTAL SODIUM. [Suspect]
     Active Substance: THIOPENTAL SODIUM
     Indication: INTENTIONAL OVERDOSE
     Route: 048
     Dates: start: 20140929, end: 20140930
  2. SERESTA [Suspect]
     Active Substance: OXAZEPAM
     Indication: INTENTIONAL OVERDOSE
     Dosage: PROBABLE TAKEN DOSE 5 G BETWEEN 29 SEP 2014 AND 30 SEP 2014
     Route: 048
     Dates: start: 20140929, end: 20140930
  3. TEMESTA [Suspect]
     Active Substance: LORAZEPAM
     Indication: INTENTIONAL OVERDOSE
     Dosage: PROBABLE TAKEN DOSE 17.5 MG BETWEEN 29 SEP 2014 AND 30 SEP 2014
     Route: 048
     Dates: start: 20140929, end: 20140930
  4. PROZAC [Suspect]
     Active Substance: FLUOXETINE HYDROCHLORIDE
     Indication: INTENTIONAL OVERDOSE
     Dosage: PROBABLE TAKEN DOSE 17.5 MG BETWEEN 29 SEP 2014 AND 30 SEP 2014
     Route: 048
     Dates: start: 20140929, end: 20140930
  5. LOPRAZOLAM MESILATE [Suspect]
     Active Substance: LOPRAZOLAM MESILATE
     Indication: INTENTIONAL OVERDOSE
     Dosage: PROBABLE TAKEN DOSE 20 MG?PROBABLE TAKEN DOSE 20 MG BETWEEN 29 SEP 2014 AND 30 SEP 2014
     Route: 048
     Dates: start: 20140929, end: 20140930
  6. ZOLPIDEM TARTRATE. [Suspect]
     Active Substance: ZOLPIDEM TARTRATE
     Indication: INTENTIONAL OVERDOSE
     Dosage: PROBABLE TAKEN DOSE 150 MG BETWEEN 29 SEP 2014 AND 30 SEP 2014
     Route: 048
     Dates: start: 20140929, end: 20140930
  7. ZOPICLONE [Suspect]
     Active Substance: ZOPICLONE
     Indication: INTENTIONAL OVERDOSE
     Dosage: PROBABLE TAKEN DOSE 630 MG BETWEEN 29 SEP 2014 AND 30 SEP 2014
     Route: 048
     Dates: start: 20140929, end: 20140930

REACTIONS (3)
  - Intentional overdose [Unknown]
  - Coma [Recovered/Resolved]
  - Rhabdomyolysis [Recovering/Resolving]

NARRATIVE: CASE EVENT DATE: 20140930
